FAERS Safety Report 7355833-9 (Version None)
Quarter: 2011Q1

REPORT INFORMATION
  Report Type: 
  Country: None (occurrence: None)
  Receive Date: 20110316
  Receipt Date: 20110310
  Transmission Date: 20110831
  Serious: Yes (Hospitalization, Other)
  Sender: FDA-Public Use
  Company Number: US-PFIZER INC-2011003317

PATIENT
  Sex: Male
  Weight: 133 kg

DRUGS (9)
  1. PLAVIX [Concomitant]
     Indication: STENT PLACEMENT
     Dosage: UNK
     Route: 048
  2. METOPROLOL [Concomitant]
     Indication: HYPERTENSION
     Dosage: 20 MG, 2X/DAY
  3. ZANTAC [Concomitant]
     Indication: GASTROOESOPHAGEAL REFLUX DISEASE
     Dosage: UNK
  4. CIALIS [Concomitant]
     Indication: ERECTILE DYSFUNCTION
     Dosage: UNK
  5. ACETYLSALICYLIC ACID [Concomitant]
     Indication: ANTIPLATELET THERAPY
     Dosage: 81 MG, 1X/DAY
  6. VIAGRA [Suspect]
     Indication: ERECTILE DYSFUNCTION
     Dosage: 100 MG, AS NEEDED
     Route: 048
     Dates: start: 20100428
  7. MICARDIS [Concomitant]
     Indication: HYPERTENSION
     Dosage: 80 MG, 1X/DAY
     Route: 048
  8. CRESTOR [Concomitant]
     Indication: BLOOD CHOLESTEROL INCREASED
     Dosage: 10 MG, 1X/DAY
     Route: 048
  9. PLAVIX [Concomitant]
     Indication: CARDIAC DISORDER

REACTIONS (6)
  - BILIARY TRACT INFECTION [None]
  - ABDOMINAL PAIN UPPER [None]
  - BILE DUCT STONE [None]
  - VISION BLURRED [None]
  - BACK PAIN [None]
  - DRUG INEFFECTIVE [None]
